FAERS Safety Report 8212813-9 (Version None)
Quarter: 2012Q1

REPORT INFORMATION
  Report Type: 
  Country: None (occurrence: None)
  Receive Date: 20120315
  Receipt Date: 20120307
  Transmission Date: 20120608
  Serious: Yes (Other)
  Sender: FDA-Public Use
  Company Number: PHHY2012JP017533

PATIENT
  Age: 25 Year
  Sex: Female
  Weight: 52 kg

DRUGS (10)
  1. NICARDIPINE HCL [Suspect]
     Indication: BLOOD PRESSURE INCREASED
     Route: 041
  2. BETAMETHASONE [Suspect]
  3. ROCURONIUM BROMIDE [Suspect]
     Indication: ANAESTHESIA
  4. NITROUS OXIDE [Concomitant]
  5. PROPOFOL [Suspect]
     Indication: ANAESTHESIA
  6. NEUPOGEN [Suspect]
  7. MIDAZOLAM [Concomitant]
  8. FENTANYL [Suspect]
     Indication: ANAESTHESIA
  9. SUGAMMADEX [Suspect]
  10. SEVOFLURANE [Suspect]

REACTIONS (2)
  - PREMATURE DELIVERY [None]
  - MATERNAL EXPOSURE DURING PREGNANCY [None]
